FAERS Safety Report 4612603-X (Version None)
Quarter: 2005Q1

REPORT INFORMATION
  Report Type: 
  Country: None (occurrence: None)
  Receive Date: 20050316
  Receipt Date: 20050301
  Transmission Date: 20050727
  Serious: Yes (Other)
  Sender: FDA-Public Use
  Company Number: 2005BI000785

PATIENT
  Age: 62 Year
  Sex: Female

DRUGS (7)
  1. AVONEX [Suspect]
     Indication: MULTIPLE SCLEROSIS
     Dosage: IM
     Route: 030
     Dates: start: 20020101, end: 20040101
  2. AVONEX [Suspect]
     Indication: MULTIPLE SCLEROSIS
     Dosage: 30 UG; QW; IM
     Route: 030
     Dates: start: 20040101, end: 20041201
  3. OXYCONTIN [Concomitant]
  4. AMANTADINE [Concomitant]
  5. NEURONTIN [Concomitant]
  6. VALIUM [Concomitant]
  7. ZOLOFT [Concomitant]

REACTIONS (4)
  - ANAPHYLACTIC REACTION [None]
  - CHILLS [None]
  - PAIN [None]
  - TREMOR [None]
